FAERS Safety Report 7624936-3 (Version None)
Quarter: 2011Q3

REPORT INFORMATION
  Report Type: 
  Country: None (occurrence: None)
  Receive Date: 20110720
  Receipt Date: 20081106
  Transmission Date: 20111222
  Serious: Yes (Other)
  Sender: FDA-Public Use
  Company Number: DE-GENENTECH-321695

PATIENT
  Age: 90 Year
  Sex: Female

DRUGS (1)
  1. LUCENTIS [Suspect]
     Indication: AGE-RELATED MACULAR DEGENERATION
     Dosage: UNK UNK, UNKNOWN
     Route: 065
     Dates: start: 20080107

REACTIONS (6)
  - FEELING ABNORMAL [None]
  - URINARY TRACT INFLAMMATION [None]
  - VISUAL ACUITY REDUCED [None]
  - NASOPHARYNGITIS [None]
  - INSOMNIA [None]
  - MALAISE [None]
